FAERS Safety Report 8250510-4 (Version None)
Quarter: 2012Q2

REPORT INFORMATION
  Report Type: 
  Country: None (occurrence: None)
  Receive Date: 20120402
  Receipt Date: 20120402
  Transmission Date: 20120825
  Serious: No
  Sender: FDA-Public Use
  Company Number: None

PATIENT
  Age: 51 Year
  Sex: Female
  Weight: 56.699 kg

DRUGS (1)
  1. CYMBALTA [Suspect]
     Indication: FIBROMYALGIA
     Dosage: 90MG
     Route: 048
     Dates: start: 20110812, end: 20120314

REACTIONS (18)
  - FEELING ABNORMAL [None]
  - CYSTITIS INTERSTITIAL [None]
  - ASTHENIA [None]
  - VERTIGO [None]
  - IRRITABILITY [None]
  - ABNORMAL SLEEP-RELATED EVENT [None]
  - DRUG INEFFECTIVE [None]
  - WRONG TECHNIQUE IN DRUG USAGE PROCESS [None]
  - DIZZINESS [None]
  - NIGHT SWEATS [None]
  - FATIGUE [None]
  - CONDITION AGGRAVATED [None]
  - PAIN [None]
  - APATHY [None]
  - FEELING OF BODY TEMPERATURE CHANGE [None]
  - PARAESTHESIA [None]
  - RESTLESS LEGS SYNDROME [None]
  - ANGER [None]
